FAERS Safety Report 7573613-6 (Version None)
Quarter: 2011Q2

REPORT INFORMATION
  Report Type: 
  Country: None (occurrence: None)
  Receive Date: 20110627
  Receipt Date: 20110612
  Transmission Date: 20111010
  Serious: Yes (Hospitalization)
  Sender: FDA-Public Use
  Company Number: IL-ROCHE-744758

PATIENT
  Sex: Female
  Weight: 78 kg

DRUGS (16)
  1. NORMOPRESAN [Concomitant]
     Dosage: TDD: 0.075
     Dates: start: 20090315
  2. DOXAZOSIN MESYLATE [Concomitant]
     Dates: start: 20090315
  3. ASCORBIC ACID [Concomitant]
     Dates: start: 20090315
  4. LEVOTHYROXINE SODIUM [Concomitant]
     Dates: start: 20090315
  5. SIMVASTATIN [Concomitant]
     Dates: start: 20090315
  6. TRIBEMIN [Concomitant]
     Dates: start: 20090315
  7. CALCIUM CARBONATE [Concomitant]
     Dates: start: 20090315
  8. LEVOTHYROXINE SODIUM [Concomitant]
     Dates: start: 20090315
  9. FUROSEMIDE [Concomitant]
     Dosage: REPORTED AS: FUSID, TDD: 40
     Dates: start: 20090315
  10. FOLIC ACID [Concomitant]
     Dates: start: 20090315
  11. ALPHA D3 [Concomitant]
     Dosage: REPORTED AS: ALFA D3
     Dates: start: 20090315
  12. TAMOXIFEN CITRATE [Concomitant]
     Dosage: REPORTED AS: TAMOXIPEN
     Dates: start: 20090315, end: 20100912
  13. ADALIMUMAB [Concomitant]
     Dates: start: 20090315
  14. METHOXY POLYETHYLENE GLYCOL-EPOETIN BETA [Suspect]
     Dosage: DOSE 80 LAST DOSE PRIOR TO SAE:19 APRIL 2010
     Route: 042
     Dates: start: 20090817
  15. ENALAPRIL MALEATE [Concomitant]
     Dosage: REPORTED AS: CONVERTIN, TDD: 20 MG
     Dates: start: 20090315
  16. VERPAMIL HCL [Concomitant]
     Dosage: REPORTED AS: IKAPRESS, TDD: 240
     Dates: start: 20090315

REACTIONS (2)
  - BREAST CANCER [None]
  - DIPLOPIA [None]
